FAERS Safety Report 8565655-9 (Version None)
Quarter: 2012Q3

REPORT INFORMATION
  Report Type: 
  Country: None (occurrence: None)
  Receive Date: 20120803
  Receipt Date: 20120727
  Transmission Date: 20120928
  Serious: Yes (Death)
  Sender: FDA-Public Use
  Company Number: CH-CUBIST-2012S1000644

PATIENT
  Age: 48 Year
  Sex: Male

DRUGS (2)
  1. VANCOMYCIN [Concomitant]
     Indication: PRODUCT USED FOR UNKNOWN INDICATION
     Dosage: DOSE UNIT:U
  2. CUBICIN [Suspect]
     Indication: LIVER DISORDER

REACTIONS (2)
  - DISEASE PROGRESSION [None]
  - POST PROCEDURAL HAEMORRHAGE [None]
